FAERS Safety Report 21043309 (Version 1)
Quarter: 2022Q3

REPORT INFORMATION
  Report Type: Spontaneous
  Country: US (occurrence: US)
  Receive Date: 20220705
  Receipt Date: 20220705
  Transmission Date: 20221027
  Serious: No
  Sender: FDA-Public Use
  Company Number: US-SAREPTA THERAPEUTICS INC.-SRP2021-001877

PATIENT
  Age: 16 Year
  Sex: Male
  Weight: 74.83 kg

DRUGS (3)
  1. EXONDYS 51 [Suspect]
     Active Substance: ETEPLIRSEN
     Indication: Duchenne muscular dystrophy
     Dosage: UNK
     Dates: end: 20211110
  2. EXONDYS 51 [Suspect]
     Active Substance: ETEPLIRSEN
     Dosage: UNK
     Dates: end: 202112
  3. EXONDYS 51 [Suspect]
     Active Substance: ETEPLIRSEN
     Dosage: UNK

REACTIONS (2)
  - Poor venous access [Unknown]
  - Poor venous access [Unknown]

NARRATIVE: CASE EVENT DATE: 20211117
